FAERS Safety Report 18434642 (Version 1)
Quarter: 2020Q4

REPORT INFORMATION
  Report Type: Spontaneous
  Country: ES (occurrence: ES)
  Receive Date: 20201028
  Receipt Date: 20201028
  Transmission Date: 20210114
  Serious: Yes (Other)
  Sender: FDA-Public Use
  Company Number: ES-SA-2020SA298728

PATIENT

DRUGS (7)
  1. FENTANYL TRANSDERMAL SYSTEM [Concomitant]
     Active Substance: FENTANYL
     Dosage: UNK 25UG/H
  2. METFORMIN [Concomitant]
     Active Substance: METFORMIN HYDROCHLORIDE
     Dosage: UNK
  3. ORFIDAL [Concomitant]
     Active Substance: LORAZEPAM
     Dosage: UNK
  4. OXALIPLATIN. [Suspect]
     Active Substance: OXALIPLATIN
     Dosage: 130 MG/M2, Q3W
     Route: 042
     Dates: start: 20200922, end: 20200922
  5. OXALIPLATIN. [Suspect]
     Active Substance: OXALIPLATIN
     Indication: GASTRIC CANCER
     Dosage: 130 MG/M2, Q3W
     Route: 042
     Dates: start: 20200901, end: 20200901
  6. PANTOPRAZOLE [Concomitant]
     Active Substance: PANTOPRAZOLE
     Dosage: UNK 28 TABLETS
  7. MOTILIUM [Concomitant]
     Active Substance: DOMPERIDONE
     Dosage: 30 TABLETS UNK

REACTIONS (3)
  - Dysaesthesia pharynx [Recovered/Resolved]
  - Monoparesis [Recovered/Resolved]
  - Paraparesis [Recovered/Resolved]

NARRATIVE: CASE EVENT DATE: 20200922
